FAERS Safety Report 21297189 (Version 1)
Quarter: 2022Q3

REPORT INFORMATION
  Report Type: Spontaneous
  Country: US (occurrence: US)
  Receive Date: 20220906
  Receipt Date: 20220906
  Transmission Date: 20221026
  Serious: Yes (Hospitalization)
  Sender: FDA-Public Use
  Company Number: US-MYLANLABS-2022M1090311

PATIENT
  Age: 8 Decade
  Sex: Male

DRUGS (14)
  1. AZACITIDINE [Suspect]
     Active Substance: AZACITIDINE
     Indication: Bone marrow conditioning regimen
     Dosage: UNK
     Route: 065
     Dates: start: 2015
  2. PRIVIGEN [Suspect]
     Active Substance: HUMAN IMMUNOGLOBULIN G
     Indication: Waldenstrom^s macroglobulinaemia
     Dosage: 2 DOSES
     Route: 042
     Dates: start: 2016
  3. PRIVIGEN [Suspect]
     Active Substance: HUMAN IMMUNOGLOBULIN G
     Indication: Myelodysplastic syndrome
  4. RITUXIMAB [Suspect]
     Active Substance: RITUXIMAB
     Indication: Waldenstrom^s macroglobulinaemia
     Dosage: UNK, CYCLE, FOUR CYCLES
     Route: 065
     Dates: start: 2015, end: 2018
  5. RITUXIMAB [Suspect]
     Active Substance: RITUXIMAB
     Indication: Myelodysplastic syndrome
     Dosage: UNK, CYCLE
     Route: 065
     Dates: start: 201908, end: 201908
  6. IBRUTINIB [Suspect]
     Active Substance: IBRUTINIB
     Indication: Waldenstrom^s macroglobulinaemia
     Dosage: UNK
     Route: 065
     Dates: start: 201808, end: 201903
  7. IBRUTINIB [Suspect]
     Active Substance: IBRUTINIB
     Indication: Myelodysplastic syndrome
  8. OBINUTUZUMAB [Suspect]
     Active Substance: OBINUTUZUMAB
     Indication: Waldenstrom^s macroglobulinaemia
     Dosage: UNK
     Route: 065
     Dates: start: 201808, end: 201903
  9. OBINUTUZUMAB [Suspect]
     Active Substance: OBINUTUZUMAB
     Indication: Myelodysplastic syndrome
  10. LENALIDOMIDE [Suspect]
     Active Substance: LENALIDOMIDE
     Indication: Waldenstrom^s macroglobulinaemia
     Dosage: 10 MILLIGRAM, CYCLE 10 MG FOR 21/28 DAYS
     Route: 065
     Dates: start: 2014
  11. LENALIDOMIDE [Suspect]
     Active Substance: LENALIDOMIDE
     Indication: Myelodysplastic syndrome
  12. BENDAMUSTINE [Suspect]
     Active Substance: BENDAMUSTINE
     Indication: Waldenstrom^s macroglobulinaemia
     Dosage: 30 MILLIGRAM/SQ. METER, CYCLE, ONE CYCLE
     Route: 065
     Dates: start: 201908, end: 201908
  13. BENDAMUSTINE [Suspect]
     Active Substance: BENDAMUSTINE
     Indication: Myelodysplastic syndrome
  14. ELTROMBOPAG [Concomitant]
     Active Substance: ELTROMBOPAG
     Indication: Waldenstrom^s macroglobulinaemia
     Dosage: UNK
     Route: 065
     Dates: start: 2015

REACTIONS (1)
  - Gene mutation [Unknown]
